FAERS Safety Report 17913176 (Version 1)
Quarter: 2020Q2

REPORT INFORMATION
  Report Type: Spontaneous
  Country: FR (occurrence: FR)
  Receive Date: 20200618
  Receipt Date: 20200618
  Transmission Date: 20200714
  Serious: Yes (Other)
  Sender: FDA-Public Use
  Company Number: FR-MYLANLABS-2020M1056315

PATIENT
  Sex: Male

DRUGS (2)
  1. ATORVASTATIN [Suspect]
     Active Substance: ATORVASTATIN
     Indication: BLOOD CHOLESTEROL ABNORMAL
     Dosage: 40 MG
  2. ATORVASTATIN [Suspect]
     Active Substance: ATORVASTATIN
     Dosage: 80 MG

REACTIONS (8)
  - Malaise [Unknown]
  - Muscle fatigue [Unknown]
  - Respiratory failure [Unknown]
  - Dyspnoea [Unknown]
  - Decreased appetite [Unknown]
  - Dizziness [Unknown]
  - Muscular weakness [Unknown]
  - Myalgia [Unknown]
